FAERS Safety Report 9223695 (Version 1)
Quarter: 2013Q2

REPORT INFORMATION
  Report Type: Spontaneous
  Country: US (occurrence: US)
  Receive Date: 20130410
  Receipt Date: 20130410
  Transmission Date: 20140414
  Serious: No
  Sender: FDA-Public Use
  Company Number: US-TEVA-396345USA

PATIENT
  Sex: Male

DRUGS (2)
  1. NUVIGIL [Suspect]
     Indication: HYPERSOMNIA
  2. PROVIGIL [Suspect]
     Indication: HYPERSOMNIA

REACTIONS (2)
  - Headache [Unknown]
  - Off label use [Unknown]
